FAERS Safety Report 10850309 (Version 1)
Quarter: 2015Q1

REPORT INFORMATION
  Report Type: Spontaneous
  Country: US (occurrence: US)
  Receive Date: 20150221
  Receipt Date: 20150221
  Transmission Date: 20150721
  Serious: No
  Sender: FDA-Public Use
  Company Number: US-NOVEN-15US013320

PATIENT
  Age: 68 Year
  Sex: Female

DRUGS (2)
  1. MINIVELLE [Suspect]
     Active Substance: ESTRADIOL
     Indication: HORMONE REPLACEMENT THERAPY
     Dosage: 0.05MG, TWICE WEEKLY
     Route: 062
  2. MINIVELLE [Suspect]
     Active Substance: ESTRADIOL
     Dosage: 0.05MG, TWICE WEEKLY
     Route: 062

REACTIONS (4)
  - Nausea [Not Recovered/Not Resolved]
  - Treatment noncompliance [Not Recovered/Not Resolved]
  - Wrong technique in drug usage process [Not Recovered/Not Resolved]
  - Product quality issue [Not Recovered/Not Resolved]

NARRATIVE: CASE EVENT DATE: 201501
